FAERS Safety Report 11766919 (Version 3)
Quarter: 2015Q4

REPORT INFORMATION
  Report Type: Spontaneous
  Country: FR (occurrence: FR)
  Receive Date: 20151123
  Receipt Date: 20151222
  Transmission Date: 20160304
  Serious: Yes (Other)
  Sender: FDA-Public Use
  Company Number: PHHY2015FR123447

PATIENT
  Age: 48 Year
  Sex: Female
  Weight: 92 kg

DRUGS (1)
  1. GILENYA [Suspect]
     Active Substance: FINGOLIMOD HYDROCHLORIDE
     Indication: MULTIPLE SCLEROSIS
     Dosage: UNK
     Route: 048
     Dates: start: 20140925, end: 201510

REACTIONS (3)
  - Breast disorder [Unknown]
  - Invasive ductal breast carcinoma [Unknown]
  - Invasive lobular breast carcinoma [Unknown]

NARRATIVE: CASE EVENT DATE: 2015
